FAERS Safety Report 4453263-0 (Version None)
Quarter: 2004Q3

REPORT INFORMATION
  Report Type: 
  Country: None (occurrence: None)
  Receive Date: 20040902
  Receipt Date: 20040510
  Transmission Date: 20050211
  Serious: No
  Sender: FDA-Public Use
  Company Number: 200417855BWH

PATIENT
  Age: 9 Year
  Sex: Female

DRUGS (2)
  1. LEVITRA [Suspect]
     Dosage: 10 MG, ONCE, ORAL
     Route: 048
     Dates: start: 20040501
  2. BENADRYL [Concomitant]

REACTIONS (1)
  - NO ADVERSE DRUG EFFECT [None]
